FAERS Safety Report 7161932-7 (Version None)
Quarter: 2010Q4

REPORT INFORMATION
  Report Type: 
  Country: None (occurrence: None)
  Receive Date: 20101215
  Receipt Date: 20100720
  Transmission Date: 20110411
  Serious: Yes (Disabling, Other)
  Sender: FDA-Public Use
  Company Number: FR-PFIZER INC-2010084509

PATIENT
  Age: 71 Year
  Sex: Male
  Weight: 90 kg

DRUGS (7)
  1. LYRICA [Suspect]
     Indication: NEUROPATHY PERIPHERAL
     Dosage: 150 MG, 2X/DAY
     Route: 048
     Dates: start: 20100620, end: 20100705
  2. ATHYMIL [Concomitant]
     Indication: DEPRESSION
     Dosage: 30 MG, 1X/DAY
     Route: 048
     Dates: start: 20080801
  3. ATHYMIL [Concomitant]
     Indication: INSOMNIA
  4. LAROXYL [Concomitant]
     Indication: DEPRESSION
     Dosage: 4% DROP, 20MG IN ONE INTAKE
     Route: 048
     Dates: start: 20080801
  5. LAROXYL [Concomitant]
     Indication: INSOMNIA
  6. TERCIAN [Concomitant]
     Indication: INSOMNIA
     Dosage: 25 MG, 1X/DAY
     Route: 048
     Dates: start: 20080801
  7. STILNOX [Concomitant]
     Indication: INSOMNIA
     Dosage: 20 MG, 1X/DAY
     Route: 048
     Dates: start: 20080801

REACTIONS (5)
  - DIZZINESS [None]
  - DRUG INEFFECTIVE [None]
  - FEELING DRUNK [None]
  - FLUSHING [None]
  - SOMNOLENCE [None]
